FAERS Safety Report 4429959-3 (Version None)
Quarter: 2004Q3

REPORT INFORMATION
  Report Type: 
  Country: None (occurrence: None)
  Receive Date: 20040817
  Receipt Date: 20040810
  Transmission Date: 20050211
  Serious: Yes (Death)
  Sender: FDA-Public Use
  Company Number: USA-2003-0010721

PATIENT
  Age: 61 Year
  Sex: Female
  Weight: 73.5 kg

DRUGS (13)
  1. OXYCODONE HCL [Suspect]
     Indication: PAIN
  2. CODEINE (CODEINE) [Suspect]
  3. NICOTINE [Suspect]
  4. CAFFEINE (CAFFEINE) [Suspect]
  5. ACETAMINOPHEN [Suspect]
  6. PROPOXYPHENE HYDROCHLORIDE (DEXTROPROPOXYPHENE HYDROCHLORIDE) [Suspect]
     Indication: PAIN
     Dosage: 65 MG
  7. XANAX [Suspect]
     Indication: ANXIETY
     Dosage: 1 MG
  8. ATENOLOL [Suspect]
  9. TRAZODONE HCL [Concomitant]
  10. TEMAZEPAM (TEMZEPAM) [Concomitant]
  11. MENEST ^MONARCH^ (ESTROGENS ESTERIFIED) [Concomitant]
  12. DARVON [Concomitant]
  13. BEXTRA [Concomitant]

REACTIONS (3)
  - ARTERIOSCLEROSIS [None]
  - COMA [None]
  - TOXICOLOGIC TEST ABNORMAL [None]
